FAERS Safety Report 20107519 (Version 1)
Quarter: 2021Q4

REPORT INFORMATION
  Report Type: Spontaneous
  Country: US (occurrence: None)
  Receive Date: 20211123
  Receipt Date: 20211123
  Transmission Date: 20220303
  Serious: No
  Sender: FDA-Public Use
  Company Number: None

PATIENT
  Age: 74 Year
  Sex: Female

DRUGS (21)
  1. JUXTAPID [Suspect]
     Active Substance: LOMITAPIDE MESYLATE
     Indication: Type IIa hyperlipidaemia
     Dosage: FREQUENCY : AT BEDTIME;?
     Route: 048
     Dates: start: 20211022
  2. JUXTAPID [Suspect]
     Active Substance: LOMITAPIDE MESYLATE
     Indication: Arteriosclerosis
  3. JUXTAPID [Suspect]
     Active Substance: LOMITAPIDE MESYLATE
     Indication: Carotid artery stenosis
  4. CLOPIDOGREL [Concomitant]
     Active Substance: CLOPIDOGREL BISULFATE
  5. ESOMEPRAZOLE [Concomitant]
     Active Substance: ESOMEPRAZOLE
  6. FERROUS SULFATE [Concomitant]
     Active Substance: FERROUS SULFATE
  7. LEVOTHYROXINE .075MG [Concomitant]
  8. CALCIUM [Concomitant]
     Active Substance: CALCIUM
  9. MONTELUKAST [Concomitant]
     Active Substance: MONTELUKAST SODIUM
  10. RANITIDINE [Concomitant]
     Active Substance: RANITIDINE
  11. TRAMADOL [Concomitant]
     Active Substance: TRAMADOL
  12. TRAZODONE [Concomitant]
     Active Substance: TRAZODONE HYDROCHLORIDE
  13. VITAMINS [Concomitant]
     Active Substance: VITAMINS
  14. NITROGLYCERIN 0.4MG [Concomitant]
  15. VITAMIN E [Concomitant]
     Active Substance: .ALPHA.-TOCOPHEROL
  16. ASPIRIN [Concomitant]
     Active Substance: ASPIRIN
  17. OMEGA 3 [Concomitant]
     Active Substance: CAPSAICIN
  18. SERTRALINE [Concomitant]
     Active Substance: SERTRALINE HYDROCHLORIDE
  19. SACROSIDASC [Concomitant]
  20. LIDOCAINE [Concomitant]
     Active Substance: LIDOCAINE
  21. PLEXUS BIO CLEANSE [Concomitant]

REACTIONS (2)
  - Therapy interrupted [None]
  - Gastroenteritis viral [None]

NARRATIVE: CASE EVENT DATE: 20211123
